FAERS Safety Report 7958448-4 (Version None)
Quarter: 2011Q4

REPORT INFORMATION
  Report Type: 
  Country: None (occurrence: None)
  Receive Date: 20111205
  Receipt Date: 20111122
  Transmission Date: 20120403
  Serious: Yes (Other)
  Sender: FDA-Public Use
  Company Number: BR-ELI_LILLY_AND_COMPANY-BR201111001203

PATIENT
  Sex: Female
  Weight: 42 kg

DRUGS (5)
  1. POLIVITAMINE [Concomitant]
     Indication: MALNUTRITION
     Dosage: UNK, UNKNOWN
     Route: 048
  2. ANTIHYPERTENSIVES [Concomitant]
     Indication: HYPERTENSION
     Dosage: UNK, UNKNOWN
     Route: 048
  3. ANTIFLATULENTS [Concomitant]
     Indication: FLATULENCE
     Dosage: UNK, UNKNOWN
     Route: 048
  4. EVISTA [Suspect]
     Indication: OSTEOPOROSIS
     Dosage: 60 MG, QD
     Route: 048
     Dates: start: 20110801
  5. EVISTA [Suspect]
     Dosage: 60 MG, QD
     Route: 048

REACTIONS (3)
  - HAEMOGLOBIN URINE PRESENT [None]
  - HAEMORRHAGE URINARY TRACT [None]
  - INTENTIONAL DRUG MISUSE [None]
